FAERS Safety Report 23817956 (Version 1)
Quarter: 2024Q2

REPORT INFORMATION
  Report Type: Spontaneous
  Country: US (occurrence: US)
  Receive Date: 20240506
  Receipt Date: 20240506
  Transmission Date: 20240715
  Serious: No
  Sender: FDA-Public Use
  Company Number: US-OrBion Pharmaceuticals Private Limited-2156549

PATIENT
  Age: 39 Year
  Sex: Female

DRUGS (1)
  1. ROPINIROLE HYDROCHLORIDE [Suspect]
     Active Substance: ROPINIROLE HYDROCHLORIDE
     Indication: Product used for unknown indication
     Route: 048
     Dates: start: 20231015

REACTIONS (3)
  - Product formulation issue [Unknown]
  - Dysgeusia [Recovered/Resolved]
  - Product odour abnormal [Unknown]
